FAERS Safety Report 8989056 (Version 1)
Quarter: 2012Q4

REPORT INFORMATION
  Report Type: Spontaneous
  Country: US (occurrence: None)
  Receive Date: 20121224
  Receipt Date: 20121224
  Transmission Date: 20130627
  Serious: Yes (Other)
  Sender: FDA-Public Use
  Company Number: None

PATIENT
  Age: 59 Year
  Sex: Male
  Weight: 70.31 kg

DRUGS (5)
  1. AMANTADINE [Suspect]
     Indication: SLEEPINESS
     Dosage: 100 mg  1x daily 9/12/12 po
     Route: 048
     Dates: start: 20120912, end: 20120918
  2. AMANTADINE [Suspect]
     Indication: CONCENTRATION IMPAIRED
     Dosage: 100 mg  1x daily 9/12/12 po
     Route: 048
     Dates: start: 20120912, end: 20120918
  3. AMANTADINE [Suspect]
     Indication: SLEEPINESS
     Dosage: 100 mg  2x daily 9/19/2012 po
     Route: 048
     Dates: start: 20120919, end: 20121115
  4. AMANTADINE [Suspect]
     Indication: CONCENTRATION IMPAIRED
     Dosage: 100 mg  2x daily 9/19/2012 po
     Route: 048
     Dates: start: 20120919, end: 20121115
  5. STRATTERA [Concomitant]

REACTIONS (1)
  - Spider vein [None]
